FAERS Safety Report 8120176 (Version 6)
Quarter: 2013Q2

REPORT INFORMATION
  Report Type: Spontaneous
  Country: CA (occurrence: CA)
  Receive Date: 20110905
  Receipt Date: 20130415
  Transmission Date: 20140414
  Serious: Yes (Other)
  Sender: FDA-Public Use
  Company Number: PHHY2011CA78012

PATIENT
  Sex: Male

DRUGS (2)
  1. ZOMETA [Suspect]
     Indication: PROSTATE CANCER METASTATIC
     Dosage: 4 MG, EVERY 4 WEEKS
     Route: 042
     Dates: start: 20110830
  2. ZOMETA [Suspect]
     Dosage: 4 MG, EVERY 2 MONTHS
     Route: 042

REACTIONS (4)
  - Heart rate decreased [Unknown]
  - Headache [Unknown]
  - Blood pressure increased [Unknown]
  - Nephrolithiasis [Unknown]
